FAERS Safety Report 6243496-5 (Version None)
Quarter: 2009Q2

REPORT INFORMATION
  Report Type: 
  Country: None (occurrence: None)
  Receive Date: 20090624
  Receipt Date: 20090615
  Transmission Date: 20091009
  Serious: Yes (Hospitalization)
  Sender: FDA-Public Use
  Company Number: SE-B.I. PHARMACEUTICALS,INC./RIDGEFIELD-2009-SW-00151SW

PATIENT
  Age: 49 Year
  Sex: Male

DRUGS (12)
  1. SIFROL TAB. 0.18 MG [Suspect]
     Indication: RESTLESS LEGS SYNDROME
     Route: 048
     Dates: end: 20090506
  2. SPIRONOLACTONE [Suspect]
     Indication: CIRRHOSIS ALCOHOLIC
     Dosage: 150 MG
     Route: 048
  3. OMEPRAZOLE [Concomitant]
  4. KONAKION [Concomitant]
  5. THERALEN [Concomitant]
  6. INDERAL [Concomitant]
  7. ORALOVITE [Concomitant]
  8. IMPUGAN [Concomitant]
  9. CIPRAMIL [Concomitant]
  10. LAKTULOS [Concomitant]
  11. CAMPRAL [Concomitant]
  12. KALCIPOS [Concomitant]

REACTIONS (4)
  - AGITATION [None]
  - BLOOD BILIRUBIN INCREASED [None]
  - CONFUSIONAL STATE [None]
  - HYPERKALAEMIA [None]
